FAERS Safety Report 9518832 (Version 1)
Quarter: 2013Q3

REPORT INFORMATION
  Report Type: Spontaneous
  Country: US (occurrence: None)
  Receive Date: 20130910
  Receipt Date: 20130910
  Transmission Date: 20140515
  Serious: Yes (Life-Threatening, Hospitalization)
  Sender: FDA-Public Use
  Company Number: None

PATIENT
  Age: 40 Year
  Sex: Female
  Weight: 74 kg

DRUGS (12)
  1. RISPERIDONE [Suspect]
     Indication: SCHIZOPHRENIA
     Dosage: 3 TABLETS  QHS/BEDTIME  ORAL
     Route: 048
  2. CHOLECALCIAREL [Concomitant]
  3. FLUOXETINE [Concomitant]
  4. HYDROXYZINE [Concomitant]
  5. NOVOLOG MIX 70-30 [Concomitant]
  6. LORAZEPAM [Concomitant]
  7. METFORMIN [Concomitant]
  8. MUPIROCIN [Concomitant]
  9. PREVIFEM [Concomitant]
  10. POTASSIUM CHLORIDE [Concomitant]
  11. OMEPRAZOLE [Concomitant]
  12. PHENERGEN [Concomitant]

REACTIONS (1)
  - Neuroleptic malignant syndrome [None]
